FAERS Safety Report 11733263 (Version 1)
Quarter: 2015Q4

REPORT INFORMATION
  Report Type: Spontaneous
  Country: US (occurrence: US)
  Receive Date: 20151110
  Receipt Date: 20151110
  Transmission Date: 20160304
  Serious: No
  Sender: FDA-Public Use
  Company Number: US-ELI_LILLY_AND_COMPANY-US201203005626

PATIENT
  Age: 76 Year
  Sex: Female

DRUGS (2)
  1. FORTEO [Suspect]
     Active Substance: TERIPARATIDE
     Indication: OSTEOPOROSIS
     Dosage: 20 UG, QD
     Dates: start: 20120316
  2. FORTEO [Suspect]
     Active Substance: TERIPARATIDE
     Dosage: 20 UG, QD
     Route: 065

REACTIONS (19)
  - Facial pain [Unknown]
  - Headache [Not Recovered/Not Resolved]
  - Panic reaction [Unknown]
  - Injection site bruising [Unknown]
  - Rash [Unknown]
  - Pain in extremity [Not Recovered/Not Resolved]
  - Malaise [Not Recovered/Not Resolved]
  - Feeling abnormal [Unknown]
  - Injection site haemorrhage [Unknown]
  - Swelling [Unknown]
  - Nervousness [Unknown]
  - Dysgeusia [Unknown]
  - Pain in extremity [Unknown]
  - Adverse drug reaction [Unknown]
  - Dizziness [Recovering/Resolving]
  - Abdominal discomfort [Unknown]
  - Injection site rash [Unknown]
  - Abdominal pain upper [Unknown]
  - Nausea [Not Recovered/Not Resolved]

NARRATIVE: CASE EVENT DATE: 201203
